FAERS Safety Report 9677127 (Version 3)
Quarter: 2014Q1

REPORT INFORMATION
  Report Type: Spontaneous
  Country: JP (occurrence: JP)
  Receive Date: 20131108
  Receipt Date: 20140307
  Transmission Date: 20141002
  Serious: Yes (Other)
  Sender: FDA-Public Use
  Company Number: JP-AMGEN-JPNSP2013078612

PATIENT
  Age: 67 Year
  Sex: Female
  Weight: 56 kg

DRUGS (3)
  1. PRALIA [Suspect]
     Indication: OSTEOPOROSIS
     Dosage: 60 MG, UNK
     Route: 058
     Dates: start: 20131011, end: 20131011
  2. ONEALFA [Concomitant]
     Indication: OSTEOPOROSIS
     Dosage: 1 MUG, QD
     Route: 048
     Dates: start: 20131011
  3. ELSPRI [Concomitant]
     Indication: OSTEOPOROSIS
     Dosage: 1200 MG, TID
     Route: 048
     Dates: start: 20131011

REACTIONS (2)
  - Disorientation [Recovered/Resolved]
  - Glossitis [Recovering/Resolving]
